FAERS Safety Report 17662108 (Version 3)
Quarter: 2020Q2

REPORT INFORMATION
  Report Type: Report from Study
  Country: None (occurrence: FR)
  Receive Date: 20200413
  Receipt Date: 20200604
  Transmission Date: 20200713
  Serious: Yes (Hospitalization, Disabling, Other)
  Sender: FDA-Public Use
  Company Number: FR-ABBVIE-20K-056-3361422-00

PATIENT
  Age: 69 Year
  Sex: Male

DRUGS (2)
  1. DUODOPA [Suspect]
     Active Substance: CARBIDOPA\LEVODOPA
     Indication: PARKINSON^S DISEASE
     Dosage: 2,8 ML/H BETWEEN 7H TO 22H?20 MG/ML 5 MG/ML
     Route: 050
     Dates: start: 20180607
  2. DAFALGAN [Concomitant]
     Active Substance: ACETAMINOPHEN
     Indication: PAIN
     Route: 050

REACTIONS (5)
  - Wound [Unknown]
  - Wrong technique in device usage process [Not Recovered/Not Resolved]
  - Odynophagia [Not Recovered/Not Resolved]
  - Fall [Recovered/Resolved]
  - Dysphagia [Not Recovered/Not Resolved]

NARRATIVE: CASE EVENT DATE: 202004
